FAERS Safety Report 17582950 (Version 1)
Quarter: 2020Q1

REPORT INFORMATION
  Report Type: Spontaneous
  Country: US (occurrence: US)
  Receive Date: 20200325
  Receipt Date: 20200325
  Transmission Date: 20200409
  Serious: No
  Sender: FDA-Public Use
  Company Number: US-ENDO PHARMACEUTICALS INC-2019-109544

PATIENT
  Age: 68 Year
  Sex: Male

DRUGS (16)
  1. AVEED [Suspect]
     Active Substance: TESTOSTERONE UNDECANOATE
     Indication: HYPOGONADISM
     Dosage: 750 MG, UNKNOWN
     Route: 030
     Dates: start: 201604
  2. AVEED [Suspect]
     Active Substance: TESTOSTERONE UNDECANOATE
     Dosage: 750 MG, ONCE EVERY 10WK
     Route: 030
     Dates: start: 20161013
  3. AVEED [Suspect]
     Active Substance: TESTOSTERONE UNDECANOATE
     Dosage: 750 MG, ONCE EVERY 10WK
     Route: 030
     Dates: start: 20170210
  4. AVEED [Suspect]
     Active Substance: TESTOSTERONE UNDECANOATE
     Dosage: 750 MG, ONCE EVERY 10WK
     Route: 030
     Dates: start: 20190618
  5. AVEED [Suspect]
     Active Substance: TESTOSTERONE UNDECANOATE
     Indication: TESTICULAR FAILURE
     Dosage: 750 MG, ONCE EVERY 10WK
     Route: 030
     Dates: start: 20160614
  6. AVEED [Suspect]
     Active Substance: TESTOSTERONE UNDECANOATE
     Dosage: 750 MG, ONCE EVERY 10WK
     Route: 030
     Dates: start: 20170630
  7. AVEED [Suspect]
     Active Substance: TESTOSTERONE UNDECANOATE
     Dosage: 750 MG, ONCE EVERY 10WK
     Route: 030
     Dates: start: 20171121
  8. AVEED [Suspect]
     Active Substance: TESTOSTERONE UNDECANOATE
     Dosage: 750 MG, ONCE EVERY 10WK
     Route: 030
     Dates: start: 20190121
  9. AVEED [Suspect]
     Active Substance: TESTOSTERONE UNDECANOATE
     Dosage: 750 MG, ONCE EVERY 10WK
     Route: 030
     Dates: start: 20190827
  10. AVEED [Suspect]
     Active Substance: TESTOSTERONE UNDECANOATE
     Dosage: 750 MG, ONCE EVERY 10WK
     Route: 030
     Dates: start: 20170912
  11. AVEED [Suspect]
     Active Substance: TESTOSTERONE UNDECANOATE
     Dosage: 750 MG, ONCE EVERY 10WK
     Route: 030
     Dates: start: 20191105
  12. AVEED [Suspect]
     Active Substance: TESTOSTERONE UNDECANOATE
     Dosage: 750 MG, ONCE EVERY 10WK
     Route: 030
     Dates: start: 20181019
  13. AVEED [Suspect]
     Active Substance: TESTOSTERONE UNDECANOATE
     Dosage: 750 MG, ONCE EVERY 10WK
     Route: 030
     Dates: start: 20180130
  14. AVEED [Suspect]
     Active Substance: TESTOSTERONE UNDECANOATE
     Dosage: 750 MG, ONCE EVERY 10WK
     Route: 030
     Dates: start: 20180525
  15. AVEED [Suspect]
     Active Substance: TESTOSTERONE UNDECANOATE
     Dosage: 750 MG, ONCE EVERY 10WK
     Route: 030
     Dates: start: 20180803
  16. AVEED [Suspect]
     Active Substance: TESTOSTERONE UNDECANOATE
     Dosage: 750 MG, ONCE EVERY 10WK
     Route: 030
     Dates: start: 20180316

REACTIONS (2)
  - Inappropriate schedule of product administration [Unknown]
  - Cough [Recovered/Resolved]

NARRATIVE: CASE EVENT DATE: 201605
